FAERS Safety Report 8887139 (Version 3)
Quarter: 2013Q2

REPORT INFORMATION
  Report Type: Report from Study
  Country: GB (occurrence: GB)
  Receive Date: 20121105
  Receipt Date: 20130515
  Transmission Date: 20140414
  Serious: Yes (Hospitalization)
  Sender: FDA-Public Use
  Company Number: GB-ROCHE-1150187

PATIENT
  Sex: Female
  Weight: 93 kg

DRUGS (2)
  1. TOCILIZUMAB [Suspect]
     Indication: RHEUMATOID ARTHRITIS
     Dosage: LAST DOSE PRIOR TO SAE: 12/SEP/2012
     Route: 065
     Dates: start: 20120110
  2. METHOTREXATE [Concomitant]
     Route: 065
     Dates: end: 20120801

REACTIONS (2)
  - Rheumatoid arthritis [Unknown]
  - Arthritis [Unknown]
